FAERS Safety Report 7250597-1 (Version None)
Quarter: 2011Q1

REPORT INFORMATION
  Report Type: 
  Country: None (occurrence: None)
  Receive Date: 20110128
  Receipt Date: 20110117
  Transmission Date: 20110831
  Serious: Yes (Hospitalization)
  Sender: FDA-Public Use
  Company Number: PHHY2011RU04927

PATIENT
  Age: 32 Year
  Sex: Female

DRUGS (1)
  1. KETONAL [Suspect]
     Route: 048

REACTIONS (1)
  - ANGIOEDEMA [None]
